FAERS Safety Report 9304962 (Version 1)
Quarter: 2013Q2

REPORT INFORMATION
  Report Type: Spontaneous
  Country: US (occurrence: None)
  Receive Date: 20130521
  Receipt Date: 20130521
  Transmission Date: 20140414
  Serious: Yes (Disabling, Other)
  Sender: FDA-Public Use
  Company Number: None

PATIENT
  Sex: Male
  Weight: 75.3 kg

DRUGS (6)
  1. LACRISERTS [Suspect]
     Indication: FOREIGN BODY IN EYE
     Route: 047
  2. HYDROCODONE [Concomitant]
  3. XANAX [Concomitant]
  4. LOZOL [Concomitant]
  5. DIOVAN [Concomitant]
  6. TAGAMET [Concomitant]

REACTIONS (3)
  - Product sterility lacking [None]
  - Product quality issue [None]
  - Product packaging issue [None]
